FAERS Safety Report 11167583 (Version 2)
Quarter: 2015Q3

REPORT INFORMATION
  Report Type: Spontaneous
  Country: US (occurrence: None)
  Receive Date: 20150603
  Receipt Date: 20150702
  Transmission Date: 20151125
  Serious: Yes (Hospitalization)
  Sender: FDA-Public Use
  Company Number: KAD201505-001285

PATIENT
  Age: 56 Year
  Sex: Male
  Weight: 104.3 kg

DRUGS (4)
  1. IBUPROFEN. [Concomitant]
     Active Substance: IBUPROFEN
  2. ASPIRIN. [Concomitant]
     Active Substance: ASPIRIN
  3. RIBASPHERE RIBAPAK [Suspect]
     Active Substance: RIBAVIRIN
     Indication: HEPATITIS C
     Dosage: 600 MG IN AM AND PM (1200 MG, DAILY)
     Route: 048
     Dates: start: 201412, end: 20150611
  4. SOVALDI [Suspect]
     Active Substance: SOFOSBUVIR
     Dates: start: 201412, end: 20150611

REACTIONS (11)
  - Haematoma [None]
  - Irritability [None]
  - Internal haemorrhage [None]
  - Pain [None]
  - Musculoskeletal pain [None]
  - Fatigue [None]
  - Rash [None]
  - Asthenia [None]
  - Dizziness [None]
  - Hypotension [None]
  - Headache [None]

NARRATIVE: CASE EVENT DATE: 20150327
